FAERS Safety Report 6819258-4 (Version None)
Quarter: 2010Q2

REPORT INFORMATION
  Report Type: 
  Country: None (occurrence: None)
  Receive Date: 20100630
  Receipt Date: 20100621
  Transmission Date: 20101027
  Serious: Yes (Other)
  Sender: FDA-Public Use
  Company Number: 014276

PATIENT

DRUGS (8)
  1. KEPPRA [Suspect]
     Indication: HUNTINGTON'S CHOREA
     Dosage: 250 MG DAILY INCREASING BY 250 MG EVERY 4 DAYS TO A MAXIMUM OF 3000 MG DAILY
  2. OLANZAPINE [Suspect]
     Dosage: 5 MG QD
  3. DONEPEZIL HCL [Suspect]
     Dosage: 10 MG QD
  4. PAROXETINE [Suspect]
     Dosage: 30 MG QD
  5. TRAZODONE HYDROCHLORIDE [Suspect]
     Dosage: 100 MG QD
  6. FUROSEMIDE [Suspect]
     Dosage: 80 MG QD
  7. OXYBUTYNIN CHLORIDE [Suspect]
     Dosage: 15 MG QD
  8. NEURONTIN [Suspect]
     Dosage: 900 MG QD

REACTIONS (3)
  - DRUG INTERACTION [None]
  - PARKINSONISM [None]
  - SOMNOLENCE [None]
